FAERS Safety Report 25629759 (Version 1)
Quarter: 2025Q3

REPORT INFORMATION
  Report Type: Spontaneous
  Country: US (occurrence: US)
  Receive Date: 20250731
  Receipt Date: 20250731
  Transmission Date: 20251021
  Serious: Yes (Other)
  Sender: MERCK SHARP & DOHME LLC
  Company Number: US-009507513-2314671

PATIENT
  Sex: Male

DRUGS (11)
  1. PEMBROLIZUMAB [Suspect]
     Active Substance: PEMBROLIZUMAB
     Indication: Renal cancer
  2. LENVIMA [Suspect]
     Active Substance: LENVATINIB
     Indication: Renal cancer
     Dosage: STRENGTH: 10 MG
     Route: 048
  3. WEGOVY [Concomitant]
     Active Substance: SEMAGLUTIDE
  4. XGEVA [Concomitant]
     Active Substance: DENOSUMAB
  5. SENNA [Concomitant]
     Active Substance: SENNOSIDES
  6. OXYCODONE [Concomitant]
     Active Substance: OXYCODONE
  7. FUROSEMIDE [Concomitant]
     Active Substance: FUROSEMIDE
  8. CARVEDILOL [Concomitant]
     Active Substance: CARVEDILOL
  9. ATORVASTATIN CALCIUM [Concomitant]
     Active Substance: ATORVASTATIN CALCIUM
  10. ASPIRIN [Concomitant]
     Active Substance: ASPIRIN
  11. IMODIUM [Concomitant]
     Active Substance: LOPERAMIDE HYDROCHLORIDE

REACTIONS (2)
  - Colitis [Not Recovered/Not Resolved]
  - Incorrect dose administered [Unknown]
